FAERS Safety Report 17957777 (Version 1)
Quarter: 2020Q2

REPORT INFORMATION
  Report Type: Spontaneous
  Country: CN (occurrence: CN)
  Receive Date: 20200629
  Receipt Date: 20200629
  Transmission Date: 20200714
  Serious: Yes (Death, Other)
  Sender: FDA-Public Use
  Company Number: CN-SA-2020SA165067

PATIENT

DRUGS (12)
  1. ANTI-THYMOCYTE GLOBULIN (RABBIT) NOS [Suspect]
     Active Substance: LAPINE T-LYMPHOCYTE IMMUNE GLOBULIN
     Dosage: 2.5 MG/KG, QD; 4 TO 3D BEFORE TRANSPLANATION
  2. BUSULFAN. [Suspect]
     Active Substance: BUSULFAN
     Indication: PREMEDICATION
     Dosage: 0.8 MG/KG, Q6H; 10 TO 8D BEFORE
  3. CICLOSPORIN A [Suspect]
     Active Substance: CYCLOSPORINE
     Indication: PROPHYLAXIS AGAINST GRAFT VERSUS HOST DISEASE
     Dosage: 2 MG/KG, Q12; STARTING 10 DAYS BEFORE TRANSPLANTATION
  4. ANTI-THYMOCYTE GLOBULIN (RABBIT) NOS [Suspect]
     Active Substance: LAPINE T-LYMPHOCYTE IMMUNE GLOBULIN
     Dosage: 3.5 MG/KG, QD; 2 DAYS BEFORE TRANSPLANATION
  5. G-CSF [Concomitant]
     Active Substance: GRANULOCYTE COLONY-STIMULATING FACTOR NOS
     Dosage: 5-10 MG/KG
     Route: 058
  6. ANTI-THYMOCYTE GLOBULIN (RABBIT) NOS [Suspect]
     Active Substance: LAPINE T-LYMPHOCYTE IMMUNE GLOBULIN
     Indication: PREMEDICATION
     Dosage: 1.5 MG/KG, QD; 5 DAYS BEFORE TRANSPLANATION
  7. CARMUSTINE. [Suspect]
     Active Substance: CARMUSTINE
     Indication: PREMEDICATION
     Dosage: 250 MG, QD;  7 DAYS BEFORE TRANSPLANTATION
  8. CYTARABINE. [Suspect]
     Active Substance: CYTARABINE
     Indication: PREMEDICATION
     Dosage: 4 G/M2, QD; 6 TO 5 DAYS BEFORE TRANSPLANTATION
  9. CYCLOPHOSPHAMIDE. [Suspect]
     Active Substance: CYCLOPHOSPHAMIDE
     Indication: PREMEDICATION
     Dosage: 50 MG/KG, QD; 6 TO 5 DAYS BEFORE TRANSPLANTATION
  10. METHOTREXATE. [Suspect]
     Active Substance: METHOTREXATE
     Indication: PROPHYLAXIS AGAINST GRAFT VERSUS HOST DISEASE
     Dosage: 15 MG/M2; ON 3,6 AND 11DAYS AFTER TRANSPLANATION
  11. METHOTREXATE. [Suspect]
     Active Substance: METHOTREXATE
     Dosage: 10 MG/M2; INFUSION
  12. MYCOPHENOLATE MOFETIL. [Suspect]
     Active Substance: MYCOPHENOLATE MOFETIL
     Indication: PROPHYLAXIS AGAINST GRAFT VERSUS HOST DISEASE
     Dosage: 500 MG, Q12 STARTING 10D BEFORE TRANSPLANTATION

REACTIONS (6)
  - Septic shock [Fatal]
  - Epstein-Barr virus infection [Unknown]
  - Cystitis haemorrhagic [Unknown]
  - Pyrexia [Unknown]
  - Pneumonia [Unknown]
  - Off label use [Unknown]
